FAERS Safety Report 10880397 (Version 3)
Quarter: 2015Q2

REPORT INFORMATION
  Report Type: Spontaneous
  Country: JP (occurrence: JP)
  Receive Date: 20150303
  Receipt Date: 20150409
  Transmission Date: 20150821
  Serious: Yes (Hospitalization, Other)
  Sender: FDA-Public Use
  Company Number: JP-AMGEN-JPNSP2015018312

PATIENT
  Age: 78 Year
  Sex: Female

DRUGS (1)
  1. ENBREL [Suspect]
     Active Substance: ETANERCEPT
     Indication: RHEUMATOID ARTHRITIS
     Dosage: 25 MG, WEEKLY
     Route: 058
     Dates: end: 201502

REACTIONS (5)
  - Cellulitis [Unknown]
  - White blood cell count increased [Unknown]
  - Gangrene [Unknown]
  - C-reactive protein increased [Unknown]
  - Thermal burn [Unknown]

NARRATIVE: CASE EVENT DATE: 20150215
